FAERS Safety Report 7418385-0 (Version None)
Quarter: 2011Q2

REPORT INFORMATION
  Report Type: 
  Country: None (occurrence: None)
  Receive Date: 20110415
  Receipt Date: 20110413
  Transmission Date: 20111010
  Serious: Yes (Hospitalization)
  Sender: FDA-Public Use
  Company Number: D0070897A

PATIENT
  Sex: Male
  Weight: 80 kg

DRUGS (1)
  1. ZOVIRAX [Suspect]
     Indication: HERPES ZOSTER
     Dosage: 400MG THREE TIMES PER DAY
     Route: 048
     Dates: start: 20110301, end: 20110304

REACTIONS (11)
  - DYSPNOEA [None]
  - NAUSEA [None]
  - BRONCHOSPASM [None]
  - DIARRHOEA [None]
  - HYPERSENSITIVITY [None]
  - CHEST PAIN [None]
  - VOMITING [None]
  - RASH [None]
  - COUGH [None]
  - MYALGIA [None]
  - OEDEMA [None]
